FAERS Safety Report 8107768-1 (Version None)
Quarter: 2012Q1

REPORT INFORMATION
  Report Type: 
  Country: None (occurrence: None)
  Receive Date: 20120202
  Receipt Date: 20120126
  Transmission Date: 20120608
  Serious: Yes (Hospitalization)
  Sender: FDA-Public Use
  Company Number: JP-JNJFOC-20120113021

PATIENT
  Sex: Male
  Weight: 67 kg

DRUGS (15)
  1. WARFARIN SODIUM [Interacting]
     Route: 048
     Dates: start: 20120110
  2. WARFARIN SODIUM [Interacting]
     Route: 048
     Dates: start: 20111224
  3. WARFARIN SODIUM [Interacting]
     Route: 048
     Dates: start: 20111223
  4. ADALAT [Concomitant]
     Indication: HYPERTENSION
     Route: 048
     Dates: start: 19980101
  5. MUCODYNE [Concomitant]
     Indication: ASTHMA
     Route: 048
  6. WARFARIN SODIUM [Interacting]
     Indication: HEART VALVE REPLACEMENT
     Route: 048
     Dates: start: 20120105
  7. LIPITOR [Concomitant]
     Indication: HYPERLIPIDAEMIA
     Route: 048
  8. MICONAZOLE [Suspect]
     Route: 049
  9. WARFARIN SODIUM [Interacting]
     Route: 048
     Dates: start: 19980101
  10. BISOPROLOL FUMARATE [Concomitant]
     Indication: HYPERTENSION
     Route: 048
     Dates: start: 20110908
  11. ADVAIR DISKUS 100/50 [Concomitant]
     Indication: ASTHMA
     Route: 055
  12. MICONAZOLE [Suspect]
     Indication: OESOPHAGEAL CANDIDIASIS
     Route: 049
     Dates: start: 20111209, end: 20111213
  13. ASPIRIN [Concomitant]
     Indication: HEART VALVE REPLACEMENT
     Route: 048
     Dates: start: 19980101
  14. LOSARTAN POTASSIUM [Concomitant]
     Indication: HYPERTENSION
     Route: 048
  15. SINGULAIR [Concomitant]
     Indication: ASTHMA
     Route: 048
     Dates: start: 20110526

REACTIONS (5)
  - HAEMORRHAGE SUBCUTANEOUS [None]
  - DRUG INTERACTION [None]
  - HAEMATURIA [None]
  - INTERNATIONAL NORMALISED RATIO INCREASED [None]
  - PLATELET COUNT INCREASED [None]
